FAERS Safety Report 7739310 (Version 5)
Quarter: 2013Q3

REPORT INFORMATION
  Report Type: Spontaneous
  Country: US (occurrence: US)
  Receive Date: 20101224
  Receipt Date: 20130815
  Transmission Date: 20140515
  Serious: Yes (Hospitalization)
  Sender: FDA-Public Use
  Company Number: US-BIOGENIDEC-2010BI044261

PATIENT
  Age: 56 Year
  Sex: Female

DRUGS (6)
  1. TYSABRI [Suspect]
     Indication: MULTIPLE SCLEROSIS
     Route: 042
     Dates: start: 20100429
  2. LOVASTATIN [Concomitant]
  3. EFFEXOR [Concomitant]
  4. ABILIFY [Concomitant]
  5. XANAX [Concomitant]
  6. PROVIGIL [Concomitant]

REACTIONS (4)
  - Myocardial infarction [Recovered/Resolved]
  - Coronary artery occlusion [Recovered/Resolved]
  - Vertigo [Recovered/Resolved]
  - Sleep apnoea syndrome [Not Recovered/Not Resolved]
